FAERS Safety Report 21369827 (Version 1)
Quarter: 2022Q3

REPORT INFORMATION
  Report Type: Report from Study
  Country: CA (occurrence: CA)
  Receive Date: 20220923
  Receipt Date: 20220923
  Transmission Date: 20221026
  Serious: Yes (Other)
  Sender: FDA-Public Use
  Company Number: CA-UCBSA-2022000593

PATIENT
  Age: 68 Year
  Sex: Female

DRUGS (3)
  1. CERTOLIZUMAB PEGOL [Suspect]
     Active Substance: CERTOLIZUMAB PEGOL
     Indication: Rheumatoid arthritis
     Dosage: 400 MILLIGRAM, EV 2 WEEKS(QOW)
     Route: 058
     Dates: start: 20160919
  2. CERTOLIZUMAB PEGOL [Suspect]
     Active Substance: CERTOLIZUMAB PEGOL
     Dosage: 200 MILLIGRAM, EV 2 WEEKS(QOW)
     Route: 058
  3. CERTOLIZUMAB PEGOL [Suspect]
     Active Substance: CERTOLIZUMAB PEGOL
     Dosage: 200 MILLIGRAM, EV 2 WEEKS(QOW)
     Route: 058

REACTIONS (9)
  - Blood pressure increased [Unknown]
  - Fall [Not Recovered/Not Resolved]
  - Migraine [Recovering/Resolving]
  - Vomiting [Recovering/Resolving]
  - Pain [Not Recovered/Not Resolved]
  - Nausea [Recovering/Resolving]
  - Malaise [Recovering/Resolving]
  - Oropharyngeal pain [Unknown]
  - Product dose omission issue [Unknown]

NARRATIVE: CASE EVENT DATE: 20210221
